FAERS Safety Report 25708201 (Version 1)
Quarter: 2025Q3

REPORT INFORMATION
  Report Type: Report from Study
  Country: CA (occurrence: CA)
  Receive Date: 20250821
  Receipt Date: 20250821
  Transmission Date: 20251021
  Serious: Yes (Other)
  Sender: ROCHE
  Company Number: CA-ROCHE-10000365371

PATIENT
  Age: 50 Year
  Sex: Male

DRUGS (2)
  1. VABYSMO [Suspect]
     Active Substance: FARICIMAB-SVOA
     Indication: Macular oedema
     Route: 065
     Dates: start: 20230817
  2. VABYSMO [Suspect]
     Active Substance: FARICIMAB-SVOA
     Indication: Diabetes mellitus

REACTIONS (3)
  - Eye disorder [Unknown]
  - Eye haemorrhage [Unknown]
  - Blindness [Unknown]
